FAERS Safety Report 6215823-6 (Version None)
Quarter: 2009Q2

REPORT INFORMATION
  Report Type: 
  Country: None (occurrence: None)
  Receive Date: 20090605
  Receipt Date: 20090527
  Transmission Date: 20091009
  Serious: Yes (Other)
  Sender: FDA-Public Use
  Company Number: US-AMGEN-QUU348770

PATIENT
  Age: 88 Year
  Sex: Male

DRUGS (7)
  1. ARANESP [Suspect]
     Indication: RENAL FAILURE CHRONIC
     Dates: start: 20050101
  2. LISINOPRIL [Concomitant]
  3. METOPROLOL SUCCINATE [Concomitant]
  4. NORVASC [Concomitant]
  5. LOZOL [Concomitant]
     Dates: end: 20090501
  6. FLOMAX [Concomitant]
  7. ZOCOR [Concomitant]

REACTIONS (9)
  - BLOOD THYROID STIMULATING HORMONE INCREASED [None]
  - COLONIC POLYP [None]
  - COOMBS TEST POSITIVE [None]
  - FATIGUE [None]
  - HAEMOGLOBIN DECREASED [None]
  - HAEMOLYTIC ANAEMIA [None]
  - HAPTOGLOBIN DECREASED [None]
  - PROSTATE CANCER [None]
  - SKIN CANCER [None]
